FAERS Safety Report 6838388-4 (Version None)
Quarter: 2010Q3

REPORT INFORMATION
  Report Type: 
  Country: None (occurrence: None)
  Receive Date: 20100713
  Receipt Date: 20070611
  Transmission Date: 20110219
  Serious: No
  Sender: FDA-Public Use
  Company Number: US-PFIZER INC-2007048968

PATIENT
  Sex: Female
  Weight: 72.6 kg

DRUGS (4)
  1. CHANTIX [Suspect]
     Indication: SMOKING CESSATION THERAPY
     Dates: start: 20070501
  2. ESTRACE [Concomitant]
     Indication: HORMONE REPLACEMENT THERAPY
  3. PRILOSEC [Concomitant]
     Indication: GASTROOESOPHAGEAL REFLUX DISEASE
  4. LORAZEPAM [Concomitant]
     Indication: INSOMNIA

REACTIONS (2)
  - DEPRESSION [None]
  - FEELING ABNORMAL [None]
